FAERS Safety Report 20081946 (Version 1)
Quarter: 2021Q4

REPORT INFORMATION
  Report Type: Spontaneous
  Country: US (occurrence: None)
  Receive Date: 20211117
  Receipt Date: 20211117
  Transmission Date: 20220303
  Serious: Yes (Other)
  Sender: FDA-Public Use
  Company Number: None

PATIENT
  Age: 64 Year
  Sex: Female
  Weight: 56.7 kg

DRUGS (1)
  1. DULOXETINE [Suspect]
     Active Substance: DULOXETINE
     Indication: Pain
     Dates: start: 20210201, end: 20210520

REACTIONS (9)
  - Increased appetite [None]
  - Abdominal distension [None]
  - Contusion [None]
  - Migraine [None]
  - Speech disorder [None]
  - Anger [None]
  - Head discomfort [None]
  - Fatigue [None]
  - Aggression [None]

NARRATIVE: CASE EVENT DATE: 20210602
